FAERS Safety Report 5899771-7 (Version None)
Quarter: 2008Q3

REPORT INFORMATION
  Report Type: 
  Country: None (occurrence: None)
  Receive Date: 20080926
  Receipt Date: 20080918
  Transmission Date: 20090109
  Serious: Yes (Life-Threatening, Hospitalization, Other)
  Sender: FDA-Public Use
  Company Number: GB-BAXTER-2008BH002880

PATIENT
  Age: 48 Year
  Sex: Female

DRUGS (4)
  1. DEXTROSE 5% [Suspect]
     Indication: PARATHYROIDECTOMY
     Route: 042
  2. METHYLENE BLUE [Suspect]
     Indication: PARATHYROIDECTOMY
     Route: 042
  3. FENTANYL [Concomitant]
     Indication: ANAESTHESIA
  4. PROPOFOL [Concomitant]
     Indication: ANAESTHESIA

REACTIONS (3)
  - GRAND MAL CONVULSION [None]
  - STATUS EPILEPTICUS [None]
  - VOMITING [None]
